FAERS Safety Report 6458243-1 (Version None)
Quarter: 2009Q4

REPORT INFORMATION
  Report Type: 
  Country: None (occurrence: None)
  Receive Date: 20091125
  Receipt Date: 20091118
  Transmission Date: 20100525
  Serious: Yes (Other)
  Sender: FDA-Public Use
  Company Number: FR-MERCK-0911FRA00064

PATIENT
  Age: 11 Year
  Sex: Male
  Weight: 46 kg

DRUGS (5)
  1. VASOTEC [Suspect]
     Indication: HYPERTENSION
     Route: 048
     Dates: start: 20070101
  2. CALCIFEDIOL [Suspect]
     Route: 048
     Dates: start: 19980101
  3. COZAAR [Suspect]
     Indication: HYPERTENSION
     Route: 048
     Dates: start: 19980101
  4. AZITHROMYCIN [Concomitant]
     Indication: BRONCHITIS
     Route: 048
  5. CALCIUM CARBONATE [Concomitant]
     Route: 048

REACTIONS (1)
  - INTRACRANIAL PRESSURE INCREASED [None]
